FAERS Safety Report 5476688-3 (Version None)
Quarter: 2007Q4

REPORT INFORMATION
  Report Type: 
  Country: None (occurrence: None)
  Receive Date: 20071002
  Receipt Date: 20070919
  Transmission Date: 20080405
  Serious: Yes (Other)
  Sender: FDA-Public Use
  Company Number: 2007331538

PATIENT
  Sex: 0

DRUGS (1)
  1. VISINE EYE DROPS [Suspect]
     Indication: DRY EYE
     Dosage: UNSPECIFIED,OPHTHALMIC
     Route: 047

REACTIONS (2)
  - EYE INJURY [None]
  - SCAR [None]
